FAERS Safety Report 12688071 (Version 1)
Quarter: 2016Q3

REPORT INFORMATION
  Report Type: Spontaneous
  Country: IE (occurrence: IE)
  Receive Date: 20160826
  Receipt Date: 20160826
  Transmission Date: 20161109
  Serious: Yes (Other)
  Sender: FDA-Public Use
  Company Number: IE-009507513-1608IRL010827

PATIENT
  Age: 50 Year
  Sex: Female

DRUGS (5)
  1. JANUMET [Suspect]
     Active Substance: METFORMIN HYDROCHLORIDE\SITAGLIPTIN PHOSPHATE
     Indication: DIABETES MELLITUS
     Dosage: 1 TABLET, TWICE A DAY
     Route: 048
     Dates: start: 20160613, end: 20160614
  2. DRYNOL [Concomitant]
     Dosage: DAILY
     Route: 048
  3. NUPRIN [Concomitant]
     Active Substance: IBUPROFEN
     Dosage: FORMULATION : GASTRO-RESISTANT TABLETS, DAILY
     Route: 048
  4. FORXIGA [Concomitant]
     Active Substance: DAPAGLIFLOZIN
     Dosage: DAILY
     Route: 048
  5. ESOMEPRAZOLE [Concomitant]
     Active Substance: ESOMEPRAZOLE
     Dosage: FORMULATION : GASTRO-RESISTANT CAPSULE , DAILY
     Route: 048

REACTIONS (6)
  - Lethargy [Recovered/Resolved]
  - Arthralgia [Recovered/Resolved]
  - Influenza like illness [Recovered/Resolved]
  - Burning sensation [Recovered/Resolved]
  - Fatigue [Recovered/Resolved]
  - Dermatitis bullous [Recovered/Resolved]
